FAERS Safety Report 8401369 (Version 3)
Quarter: 2012Q4

REPORT INFORMATION
  Report Type: Report from Study
  Country: DE (occurrence: DE)
  Receive Date: 20120210
  Receipt Date: 20121112
  Transmission Date: 20130627
  Serious: Yes (Hospitalization)
  Sender: FDA-Public Use
  Company Number: DE-ROCHE-1035640

PATIENT
  Age: 77 Year
  Sex: Female
  Weight: 79 kg

DRUGS (11)
  1. TOCILIZUMAB [Suspect]
     Indication: RHEUMATOID ARTHRITIS
     Route: 042
     Dates: start: 20111020, end: 20111117
  2. TOCILIZUMAB [Suspect]
     Route: 042
     Dates: start: 20111117, end: 20111127
  3. PREDNISOLON [Concomitant]
     Route: 065
  4. L-THYROXINE [Concomitant]
     Route: 065
  5. ENALAPRIL [Concomitant]
     Route: 065
  6. METOPROLOL [Concomitant]
     Route: 065
  7. CALCIVIT D [Concomitant]
     Dosage: 2df
     Route: 065
  8. TRAMADOL [Concomitant]
     Route: 065
  9. DYTIDE H [Concomitant]
     Route: 065
  10. MARCUMAR [Concomitant]
  11. PANTOPRAZOL [Concomitant]

REACTIONS (3)
  - Osteoarthritis [Not Recovered/Not Resolved]
  - Impaired healing [Recovering/Resolving]
  - Necrosis [Recovering/Resolving]
